FAERS Safety Report 9831061 (Version 3)
Quarter: 2014Q1

REPORT INFORMATION
  Report Type: Report from Study
  Country: KR (occurrence: KR)
  Receive Date: 20140120
  Receipt Date: 20140326
  Transmission Date: 20141002
  Serious: Yes (Hospitalization)
  Sender: FDA-Public Use
  Company Number: KR-BRISTOL-MYERS SQUIBB COMPANY-19990852

PATIENT
  Age: 61 Year
  Sex: Female

DRUGS (8)
  1. ORENCIA [Suspect]
     Dosage: 26DEC12,10JAN13,24JAN,21FEB,21MAR13?12JUN13,17JUL13,14AUG13,11SEP13:250MG
     Route: 042
     Dates: start: 20121226
  2. METHOTREXATE [Suspect]
     Dosage: 18JAN01-25AUG03,05JUL05-02AUG05,26JAN06
     Dates: start: 20010118
  3. FOLIC ACID [Concomitant]
     Dates: start: 20090716
  4. TRIAMCINOLONE [Concomitant]
     Dates: start: 20010108
  5. PANTOPRAZOLE SODIUM [Concomitant]
     Dosage: PANTOPRAZOLE SODIUM SESQUIHYDRATE
     Dates: start: 20120818
  6. FERROUS SULFATE [Concomitant]
     Dosage: FERROUS SULFATE DRIED
     Dates: start: 20121023
  7. ROSUVASTATIN CALCIUM [Concomitant]
     Dates: start: 20121227
  8. EPERISONE HCL [Concomitant]
     Dates: start: 20120912

REACTIONS (3)
  - Pseudomembranous colitis [Recovered/Resolved]
  - Bronchiectasis [Unknown]
  - Anaemia [Not Recovered/Not Resolved]
